FAERS Safety Report 19963254 (Version 1)
Quarter: 2021Q4

REPORT INFORMATION
  Report Type: Report from Study
  Country: US (occurrence: US)
  Receive Date: 20211018
  Receipt Date: 20211018
  Transmission Date: 20220304
  Serious: Yes (Hospitalization, Disabling, Other)
  Sender: FDA-Public Use
  Company Number: US-SA-2019SA199662

PATIENT
  Age: 79 Year
  Sex: Female
  Weight: 88.9 kg

DRUGS (23)
  1. DUPILUMAB [Suspect]
     Active Substance: DUPILUMAB
     Indication: Asthma
     Dosage: 600 MG, 1X
     Route: 058
     Dates: start: 20190703, end: 20190703
  2. DUPILUMAB [Suspect]
     Active Substance: DUPILUMAB
     Dosage: 300 MG, QOW
     Route: 058
     Dates: start: 20190717
  3. ASPIRIN [Concomitant]
     Active Substance: ASPIRIN
  4. CALCIUM CARBONATE [Concomitant]
     Active Substance: CALCIUM CARBONATE
  5. EPIPEN [Concomitant]
     Active Substance: EPINEPHRINE
  6. FLONASE ALLERGY RELIEF [Concomitant]
     Active Substance: FLUTICASONE PROPIONATE
  7. MAGNESIUM [Concomitant]
     Active Substance: MAGNESIUM
     Indication: Blood magnesium decreased
     Route: 042
  8. VITAMINS [Concomitant]
     Active Substance: VITAMINS
  9. SPIRIVA RESPIMAT [Concomitant]
     Active Substance: TIOTROPIUM BROMIDE
     Indication: Asthma
  10. VITAMIN D3 [Concomitant]
     Active Substance: CHOLECALCIFEROL
  11. HYDROCHLOROTHIAZIDE [Concomitant]
     Active Substance: HYDROCHLOROTHIAZIDE
  12. OMEPRAZOLE [Concomitant]
     Active Substance: OMEPRAZOLE
  13. AZELASTINE. [Concomitant]
     Active Substance: AZELASTINE HYDROCHLORIDE
  14. SIMVASTATIN [Concomitant]
     Active Substance: SIMVASTATIN
  15. MONTELUKAST SODIUM [Concomitant]
     Active Substance: MONTELUKAST SODIUM
  16. CARDIZEM LA [Concomitant]
     Active Substance: DILTIAZEM HYDROCHLORIDE
  17. FLUTICASONE PROPIONATE [Concomitant]
     Active Substance: FLUTICASONE PROPIONATE
  18. AZITHROMYCIN ANHYDROUS [Concomitant]
     Active Substance: AZITHROMYCIN ANHYDROUS
  19. SYNTHROID [Concomitant]
     Active Substance: LEVOTHYROXINE SODIUM
  20. DOXYCYCLINE HYCLATE [Concomitant]
     Active Substance: DOXYCYCLINE HYCLATE
  21. SINGULAIR [Concomitant]
     Active Substance: MONTELUKAST SODIUM
     Indication: Asthma
  22. SYMBICORT [Concomitant]
     Active Substance: BUDESONIDE\FORMOTEROL FUMARATE DIHYDRATE
     Indication: Asthma
  23. POTASSIUM [Concomitant]
     Active Substance: POTASSIUM
     Indication: Blood potassium decreased
     Route: 042

REACTIONS (45)
  - Vomiting [Not Recovered/Not Resolved]
  - Fall [Unknown]
  - Ankle fracture [Not Recovered/Not Resolved]
  - Asthma [Unknown]
  - Lung disorder [Unknown]
  - Cough [Not Recovered/Not Resolved]
  - Wheezing [Not Recovered/Not Resolved]
  - Malaise [Not Recovered/Not Resolved]
  - Confusional state [Unknown]
  - Cerebrovascular accident [Unknown]
  - Transient ischaemic attack [Unknown]
  - Heart rate increased [Unknown]
  - Blood magnesium decreased [Unknown]
  - Balance disorder [Recovering/Resolving]
  - Agitation [Unknown]
  - Anxiety [Unknown]
  - Aphasia [Not Recovered/Not Resolved]
  - Dysphemia [Unknown]
  - Blood potassium decreased [Unknown]
  - Injection site pain [Unknown]
  - Needle issue [Unknown]
  - Injection site pain [Unknown]
  - Wrong technique in device usage process [Unknown]
  - Injection site vesicles [Recovering/Resolving]
  - Injection site dryness [Recovering/Resolving]
  - Injection site pruritus [Recovering/Resolving]
  - Injection site erythema [Recovering/Resolving]
  - Cheilitis [Recovered/Resolved]
  - Respiratory tract congestion [Unknown]
  - Pain [Recovering/Resolving]
  - Dyspnoea [Unknown]
  - Secretion discharge [Unknown]
  - Hypoacusis [Unknown]
  - Oral herpes [Not Recovered/Not Resolved]
  - Headache [Not Recovered/Not Resolved]
  - Procedural pain [Not Recovered/Not Resolved]
  - Malaise [Unknown]
  - White blood cell count increased [Not Recovered/Not Resolved]
  - Back pain [Unknown]
  - Hypoaesthesia [Unknown]
  - Pain in extremity [Unknown]
  - Memory impairment [Not Recovered/Not Resolved]
  - Hypersensitivity [Unknown]
  - Product use issue [Unknown]
  - Product dose omission issue [Unknown]

NARRATIVE: CASE EVENT DATE: 20190703
